FAERS Safety Report 8826488 (Version 2)
Quarter: 2012Q4

REPORT INFORMATION
  Report Type: 
  Country: US (occurrence: US)
  Receive Date: 20121005
  Receipt Date: 20121016
  Transmission Date: 20130627
  Serious: Yes (Death, Hospitalization)
  Sender: FDA-Public Use
  Company Number: US-B.I. PHARMACEUTICALS,INC./RIDGEFIELD-2012-BP-24191BP

PATIENT
  Age: 87 Year
  Sex: Female

DRUGS (4)
  1. PRADAXA [Suspect]
     Indication: ATRIAL FIBRILLATION
     Dosage: 300 mg
     Route: 048
     Dates: start: 2012
  2. THYROID MEDICATION [Concomitant]
  3. ASPIRIN [Concomitant]
  4. CHEMOTHERAPY [Concomitant]

REACTIONS (2)
  - Death [Fatal]
  - Haemorrhage [Recovered/Resolved]
